FAERS Safety Report 6440633-4 (Version None)
Quarter: 2009Q4

REPORT INFORMATION
  Report Type: 
  Country: None (occurrence: None)
  Receive Date: 20091116
  Receipt Date: 20091102
  Transmission Date: 20100525
  Serious: Yes (Other)
  Sender: FDA-Public Use
  Company Number: PHHY2009JP48135

PATIENT
  Sex: Female
  Weight: 64 kg

DRUGS (14)
  1. DIOVAN T30230+TAB+HY [Suspect]
     Indication: HYPERTENSION
     Dosage: 40 MG, BID
     Route: 048
     Dates: start: 20070821, end: 20071001
  2. DIOVAN T30230+TAB+HY [Suspect]
     Dosage: 60 MG, BID
     Route: 048
     Dates: start: 20071001
  3. BLOPRESS [Concomitant]
     Indication: HYPERTENSION
     Dosage: 8 MG, UNK
     Route: 048
     Dates: start: 20070112, end: 20070921
  4. ADALAT CC [Concomitant]
     Indication: HYPERTENSION
     Dosage: 40 MG, UNK
     Route: 048
     Dates: start: 20070112
  5. PALGIN [Concomitant]
     Dosage: 1 MG, UNK
     Route: 048
     Dates: start: 20070112
  6. THEO-DUR [Concomitant]
     Dosage: 300 MG, UNK
     Route: 048
     Dates: start: 20070112
  7. MEPTIN [Concomitant]
     Dosage: 100 UG, UNK
     Route: 048
     Dates: start: 20070112
  8. HOKUNALIN [Concomitant]
     Dosage: 2 MG, UNK
     Route: 048
     Dates: start: 20070112
  9. GLIMICRON [Concomitant]
     Dosage: 40 MG, UNK
     Route: 048
     Dates: start: 20070112, end: 20090731
  10. GLUCOBAY [Concomitant]
     Dosage: 150 MG, UNK
     Dates: start: 20070112
  11. KINEDAK [Concomitant]
     Dosage: 3 DF, UNK
     Route: 048
     Dates: start: 20071015
  12. DAONIL [Concomitant]
     Indication: HYPERTENSION
     Dosage: 1.25 MG, UNK
     Route: 048
     Dates: start: 20090731
  13. DAONIL [Concomitant]
     Dosage: 2.5 MG, UNK
     Route: 048
  14. ACTOS [Concomitant]
     Dosage: 30 MG, UNK
     Route: 048
     Dates: start: 20090805

REACTIONS (4)
  - BLOOD PRESSURE DIASTOLIC INCREASED [None]
  - DIABETES MELLITUS [None]
  - GLUCOSE URINE PRESENT [None]
  - GLYCOSYLATED HAEMOGLOBIN INCREASED [None]
